FAERS Safety Report 5923029-0 (Version None)
Quarter: 2008Q4

REPORT INFORMATION
  Report Type: 
  Country: None (occurrence: None)
  Receive Date: 20081018
  Receipt Date: 20081007
  Transmission Date: 20090506
  Serious: Yes (Hospitalization, Other)
  Sender: FDA-Public Use
  Company Number: US-PFIZER INC-2008078800

PATIENT
  Age: 26 Year
  Sex: Male

DRUGS (4)
  1. GEODON [Suspect]
     Dates: start: 20080728
  2. PROLIXIN [Suspect]
     Indication: PSYCHOTIC DISORDER
  3. ZYPREXA [Concomitant]
  4. THORAZINE [Concomitant]

REACTIONS (4)
  - DIZZINESS [None]
  - FALL [None]
  - PSYCHOTIC DISORDER [None]
  - RHABDOMYOLYSIS [None]
